FAERS Safety Report 14526745 (Version 1)
Quarter: 2018Q1

REPORT INFORMATION
  Report Type: Spontaneous
  Country: PL (occurrence: PL)
  Receive Date: 20180213
  Receipt Date: 20180213
  Transmission Date: 20180509
  Serious: Yes (Other)
  Sender: FDA-Public Use
  Company Number: PL-REGENERON PHARMACEUTICALS, INC.-2018-14346

PATIENT

DRUGS (1)
  1. EYLEA [Suspect]
     Active Substance: AFLIBERCEPT
     Indication: NEOVASCULAR AGE-RELATED MACULAR DEGENERATION
     Dosage: 1 DF, Q4WK, TOTAL OF 3 DOSES
     Route: 031

REACTIONS (3)
  - Neovascular age-related macular degeneration [Unknown]
  - Therapy non-responder [Unknown]
  - Retinal pigment epithelial tear [Unknown]
